FAERS Safety Report 25644659 (Version 5)
Quarter: 2025Q3

REPORT INFORMATION
  Report Type: Spontaneous
  Country: EU (occurrence: EU)
  Receive Date: 20250805
  Receipt Date: 20250930
  Transmission Date: 20251021
  Serious: Yes (Hospitalization, Other)
  Sender: PFIZER
  Company Number: EU-SANDOZ-SDZ2025ES053760

PATIENT
  Age: 75 Year
  Sex: Male
  Weight: 75.5 kg

DRUGS (6)
  1. CARBOPLATIN [Suspect]
     Active Substance: CARBOPLATIN
     Indication: Non-small cell lung cancer
     Dosage: 434.98 MG, EVERY 3 WEEKS
     Route: 042
     Dates: start: 20250415, end: 20250415
  2. CARBOPLATIN [Suspect]
     Active Substance: CARBOPLATIN
     Dosage: 434.98 MG, EVERY 3 WEEKS
     Route: 042
     Dates: start: 20250527, end: 20250527
  3. CARBOPLATIN [Suspect]
     Active Substance: CARBOPLATIN
     Dosage: 473.01 MG, EVERY 3 WEEKS
     Route: 042
     Dates: start: 20250625
  4. PEMETREXED [Suspect]
     Active Substance: PEMETREXED
     Indication: Non-small cell lung cancer
     Dosage: 1005 MG, EVERY 3 WEEKS
     Route: 042
     Dates: start: 20250415, end: 20250415
  5. PEMETREXED [Suspect]
     Active Substance: PEMETREXED
     Dosage: 1005 MG, EVERY 3 WEEKS
     Route: 042
     Dates: start: 20250527, end: 20250527
  6. PEMETREXED [Suspect]
     Active Substance: PEMETREXED
     Dosage: 950 MG, EVERY 3 WEEKS
     Route: 042
     Dates: start: 20250625

REACTIONS (4)
  - Pancytopenia [Recovered/Resolved]
  - Urinary tract infection [Recovered/Resolved]
  - Constipation [Recovered/Resolved]
  - Off label use [Unknown]

NARRATIVE: CASE EVENT DATE: 20250415
